FAERS Safety Report 7805497-2 (Version None)
Quarter: 2011Q4

REPORT INFORMATION
  Report Type: 
  Country: None (occurrence: None)
  Receive Date: 20111010
  Receipt Date: 20111002
  Transmission Date: 20120403
  Serious: Yes (Hospitalization)
  Sender: FDA-Public Use
  Company Number: PHHY2011IS87777

PATIENT
  Age: 18 Year
  Sex: Male

DRUGS (1)
  1. VOLTAREN [Suspect]
     Indication: MUSCULOSKELETAL PAIN
     Dosage: UNK
     Route: 048
     Dates: start: 20091212, end: 20091212

REACTIONS (7)
  - FLANK PAIN [None]
  - RENAL FAILURE ACUTE [None]
  - BLOOD CREATININE INCREASED [None]
  - RED BLOOD CELLS URINE [None]
  - POLYURIA [None]
  - THIRST [None]
  - WHITE BLOOD CELLS URINE [None]
